FAERS Safety Report 12300889 (Version 2)
Quarter: 2016Q2

REPORT INFORMATION
  Report Type: Report from Study
  Country: CZ (occurrence: CZ)
  Receive Date: 20160425
  Receipt Date: 20160502
  Transmission Date: 20160815
  Serious: Yes (Other)
  Sender: FDA-Public Use
  Company Number: CZ-ACTELION-A-CH2016-134613

PATIENT
  Age: 49 Year
  Sex: Female
  Weight: 50 kg

DRUGS (5)
  1. TRACLEER [Suspect]
     Active Substance: BOSENTAN
     Dosage: 62.5 MG, BID
     Route: 048
     Dates: start: 2013, end: 201305
  2. TRACLEER [Suspect]
     Active Substance: BOSENTAN
     Indication: SCLERODERMA ASSOCIATED DIGITAL ULCER
     Dosage: 62.5 MG, BID
     Route: 048
     Dates: start: 20110927
  3. METHOTREXATE [Concomitant]
     Active Substance: METHOTREXATE
     Indication: SCLERODERMA ASSOCIATED DIGITAL ULCER
  4. TRACLEER [Suspect]
     Active Substance: BOSENTAN
     Dosage: 125 MG, BID
     Route: 048
     Dates: start: 2011, end: 201304
  5. TRACLEER [Suspect]
     Active Substance: BOSENTAN
     Dosage: 125 MG, BID
     Route: 048
     Dates: start: 2013

REACTIONS (1)
  - Hysterectomy [Unknown]

NARRATIVE: CASE EVENT DATE: 20151210
